FAERS Safety Report 4683974-3 (Version None)
Quarter: 2005Q2

REPORT INFORMATION
  Report Type: 
  Country: None (occurrence: None)
  Receive Date: 20050602
  Receipt Date: 20050304
  Transmission Date: 20051028
  Serious: No
  Sender: FDA-Public Use
  Company Number: 200510405BWH

PATIENT
  Age: 69 Year
  Sex: Male

DRUGS (5)
  1. LEVITRA [Suspect]
     Dosage: 10 MG, ONCE, ORAL; 10  MG, ONCE, ORAL; 20 MG, ONCE, ORAL
     Route: 048
  2. LISINOPRIL [Concomitant]
  3. LIPITOR [Concomitant]
  4. M.V.I. [Concomitant]
  5. ASPIRIN [Concomitant]

REACTIONS (1)
  - DRUG INEFFECTIVE [None]
